FAERS Safety Report 4982585-X (Version None)
Quarter: 2006Q2

REPORT INFORMATION
  Report Type: 
  Country: None (occurrence: None)
  Receive Date: 20060425
  Receipt Date: 20060404
  Transmission Date: 20061013
  Serious: Yes (Hospitalization)
  Sender: FDA-Public Use
  Company Number: SE-BOEHRINGER INGELHEIM PHARMACEUTICALS, INC.-2006-SW-00153SW

PATIENT
  Sex: Male

DRUGS (12)
  1. PERSANTIN [Suspect]
     Indication: THROMBOSIS PROPHYLAXIS
     Route: 048
     Dates: start: 20010101, end: 20060124
  2. TROMBYL [Suspect]
     Indication: THROMBOSIS PROPHYLAXIS
     Route: 048
     Dates: start: 20010101, end: 20060124
  3. METOPROLOL SUCCINATE [Concomitant]
  4. NEXIUM [Concomitant]
  5. TRYPTIZOL [Concomitant]
  6. PREDNISOLONE [Concomitant]
  7. NATRIUMBIKARBONAT [Concomitant]
  8. LASIX [Concomitant]
  9. CARDIZEM UNOTARD [Concomitant]
  10. TRIOBE [Concomitant]
  11. NEORECORMON [Concomitant]
  12. VENOFER [Concomitant]
     Dosage: STRENGTH: 20 MG/ML

REACTIONS (3)
  - CEREBRAL HAEMORRHAGE [None]
  - HEADACHE [None]
  - HEMIPARESIS [None]
